FAERS Safety Report 7000135-3 (Version None)
Quarter: 2010Q3

REPORT INFORMATION
  Report Type: 
  Country: None (occurrence: None)
  Receive Date: 20100920
  Receipt Date: 20100105
  Transmission Date: 20110219
  Serious: No
  Sender: FDA-Public Use
  Company Number: US-ASTRAZENECA-2010SE00490

PATIENT
  Age: 30 Year
  Sex: Female

DRUGS (3)
  1. SEROQUEL [Suspect]
     Indication: BIPOLAR DISORDER
     Route: 048
  2. SEROQUEL [Suspect]
     Indication: PSYCHOTIC DISORDER
     Route: 048
  3. AMITRIPTYLINE HCL [Concomitant]

REACTIONS (2)
  - EXAGGERATED STARTLE RESPONSE [None]
  - SPEECH DISORDER [None]
